FAERS Safety Report 7425554-2 (Version None)
Quarter: 2011Q2

REPORT INFORMATION
  Report Type: 
  Country: None (occurrence: None)
  Receive Date: 20110420
  Receipt Date: 20110412
  Transmission Date: 20111010
  Serious: Yes (Death)
  Sender: FDA-Public Use
  Company Number: JP-NOVOPROD-325755

PATIENT
  Age: 66 Year
  Sex: Male
  Weight: 70 kg

DRUGS (6)
  1. VICTOZA [Suspect]
     Dosage: 0.9 MG, QD
     Route: 058
     Dates: start: 20110128
  2. VICTOZA [Suspect]
     Dosage: 0.6 MG, QD
     Route: 058
  3. MAG-LAX [Concomitant]
     Indication: CONSTIPATION
     Dosage: 1.98 MG, QD
     Route: 048
     Dates: start: 20110113, end: 20110313
  4. CRESTOR [Concomitant]
     Indication: HYPERCHOLESTEROLAEMIA
     Dosage: 2.5 MG, QD
     Route: 048
     Dates: start: 20100801, end: 20110201
  5. URIEF [Concomitant]
     Indication: BENIGN PROSTATIC HYPERPLASIA
     Dosage: 8 MG, QD
     Route: 048
     Dates: end: 20110313
  6. VICTOZA [Suspect]
     Indication: TYPE 2 DIABETES MELLITUS
     Dosage: 0.3 MG, QD
     Route: 058
     Dates: start: 20110114

REACTIONS (3)
  - MALAISE [None]
  - SUDDEN DEATH [None]
  - VOMITING [None]
